FAERS Safety Report 7980267-3 (Version None)
Quarter: 2011Q4

REPORT INFORMATION
  Report Type: 
  Country: None (occurrence: None)
  Receive Date: 20111214
  Receipt Date: 20111207
  Transmission Date: 20120403
  Serious: Yes (Other)
  Sender: FDA-Public Use
  Company Number: US-AMGEN-USASP2011031539

PATIENT
  Age: 59 Year
  Sex: Female

DRUGS (4)
  1. PLAQUENIL [Concomitant]
     Dosage: 1 MG, QD
     Dates: start: 20090101
  2. PLAQUENIL [Concomitant]
     Dosage: 400 MG, UNK
     Dates: start: 20090101
  3. ENBREL [Suspect]
     Indication: RHEUMATOID ARTHRITIS
     Dosage: 50 MG, QWK
     Dates: start: 20110503, end: 20110801
  4. METHOTREXATE [Concomitant]
     Dosage: UNK
     Dates: start: 20101201

REACTIONS (4)
  - FATIGUE [None]
  - TRACHEAL MASS [None]
  - INJECTION SITE ERYTHEMA [None]
  - INJECTION SITE PRURITUS [None]
